FAERS Safety Report 9656167 (Version 2)
Quarter: 2013Q4

REPORT INFORMATION
  Report Type: Spontaneous
  Country: US (occurrence: US)
  Receive Date: 20131030
  Receipt Date: 20131111
  Transmission Date: 20140711
  Serious: No
  Sender: FDA-Public Use
  Company Number: US-PFIZER INC-2013305978

PATIENT
  Age: 52 Year
  Sex: Male

DRUGS (2)
  1. XALKORI [Suspect]
     Indication: LUNG NEOPLASM MALIGNANT
     Dosage: 250 MG, 2X/DAY
     Route: 048
     Dates: start: 2011
  2. XALKORI [Suspect]
     Dosage: 250 MG, UNK
     Dates: start: 20121214

REACTIONS (3)
  - Myalgia [Unknown]
  - Disease progression [Unknown]
  - Lung neoplasm malignant [Unknown]
